FAERS Safety Report 4947098-X (Version None)
Quarter: 2006Q1

REPORT INFORMATION
  Report Type: 
  Country: None (occurrence: None)
  Receive Date: 20060131
  Receipt Date: 20051222
  Transmission Date: 20060701
  Serious: No
  Sender: FDA-Public Use
  Company Number: 200513414US

PATIENT
  Sex: Female
  Weight: 90 kg

DRUGS (1)
  1. KETEK [Suspect]
     Indication: ACUTE SINUSITIS
     Dosage: 800 MG

REACTIONS (3)
  - ACCOMMODATION DISORDER [None]
  - DIPLOPIA [None]
  - VISION BLURRED [None]
